FAERS Safety Report 4629366-4 (Version None)
Quarter: 2005Q2

REPORT INFORMATION
  Report Type: 
  Country: None (occurrence: None)
  Receive Date: 20050405
  Receipt Date: 20050323
  Transmission Date: 20051028
  Serious: Yes (Other)
  Sender: FDA-Public Use
  Company Number: 430005N05FRA

PATIENT
  Age: 34 Year
  Sex: Female

DRUGS (6)
  1. MITOXANTRONE [Suspect]
     Indication: MULTIPLE SCLEROSIS
     Dosage: 20 MG, 1 IN 1 DAYS, INTRAVENOUS (NOT OTHERWISE SPECIFIED)
     Route: 042
     Dates: start: 20041017, end: 20041017
  2. VENLAFAXINE HCL [Concomitant]
  3. CLONAZEPAM [Concomitant]
  4. FOLIC ACID [Concomitant]
  5. DIHYDROERGOTAMINE MESYLATE [Concomitant]
  6. TROSPIUM CHLORIDE [Concomitant]

REACTIONS (1)
  - NEUTROPENIA [None]
